FAERS Safety Report 20072391 (Version 2)
Quarter: 2021Q4

REPORT INFORMATION
  Report Type: Spontaneous
  Country: RU (occurrence: None)
  Receive Date: 20211116
  Receipt Date: 20211217
  Transmission Date: 20220303
  Serious: Yes (Hospitalization, Other)
  Sender: FDA-Public Use
  Company Number: RU-Hikma Pharmaceuticals-RU-H14001-21-04765

PATIENT
  Age: 60 Year
  Sex: Female

DRUGS (11)
  1. CARBOPLATIN [Suspect]
     Active Substance: CARBOPLATIN
     Indication: Non-small cell lung cancer
     Route: 042
     Dates: start: 20210623
  2. NIMESULIDE [Concomitant]
     Active Substance: NIMESULIDE
     Indication: Arthralgia
     Route: 048
     Dates: start: 20210623, end: 20210915
  3. HYDROCORTISONE [Concomitant]
     Active Substance: HYDROCORTISONE
     Indication: Adrenal insufficiency
     Route: 048
     Dates: start: 20211008
  4. HYDROCORTISONE [Concomitant]
     Active Substance: HYDROCORTISONE
     Route: 048
     Dates: start: 20211008
  5. APIXABAN [Concomitant]
     Active Substance: APIXABAN
     Indication: Embolism
     Route: 048
     Dates: start: 20210917
  6. DEXAMETHASONE [Concomitant]
     Active Substance: DEXAMETHASONE
     Indication: Metastases to central nervous system
     Route: 048
     Dates: start: 20210829, end: 20211002
  7. DEXAMETHASONE [Concomitant]
     Active Substance: DEXAMETHASONE
     Indication: Prophylaxis
     Route: 042
     Dates: start: 20210916, end: 20210918
  8. DEXAMETHASONE [Concomitant]
     Active Substance: DEXAMETHASONE
     Indication: Premedication
  9. SORBIFER DURULES [Concomitant]
     Indication: Anaemia
     Route: 048
     Dates: start: 20210917
  10. ONDANSETRON [Concomitant]
     Active Substance: ONDANSETRON
     Indication: Premedication
     Route: 042
     Dates: start: 20210916, end: 20210918
  11. OMEPRAZOLE [Concomitant]
     Active Substance: OMEPRAZOLE
     Indication: Premedication
     Route: 042
     Dates: start: 20210916, end: 20210918

REACTIONS (1)
  - Myocardial infarction [Recovered/Resolved]

NARRATIVE: CASE EVENT DATE: 20211008
